FAERS Safety Report 14673709 (Version 1)
Quarter: 2018Q1

REPORT INFORMATION
  Report Type: Spontaneous
  Country: US (occurrence: US)
  Receive Date: 20180322
  Receipt Date: 20180322
  Transmission Date: 20180509
  Serious: Yes (Hospitalization)
  Sender: FDA-Public Use
  Company Number: None

PATIENT
  Sex: Female

DRUGS (6)
  1. ONDANSETRON 8MG [Concomitant]
     Active Substance: ONDANSETRON
  2. LOSARTAN 100MG [Concomitant]
     Active Substance: LOSARTAN
  3. NEULASTA [Suspect]
     Active Substance: PEGFILGRASTIM
     Indication: AGRANULOCYTOSIS
     Dosage: ?          OTHER FREQUENCY:1-3 D AFTER CHEMO;?
     Route: 058
     Dates: start: 20180227
  4. PANTOPRAZOLE 40MG [Concomitant]
     Active Substance: PANTOPRAZOLE SODIUM
  5. IBUPROFEN 800MG [Concomitant]
     Active Substance: IBUPROFEN
  6. PROCHLOROPERAZINE 10MG [Concomitant]

REACTIONS (3)
  - Feeling cold [None]
  - Hot flush [None]
  - Dyspnoea [None]
